FAERS Safety Report 5281606-7 (Version None)
Quarter: 2007Q1

REPORT INFORMATION
  Report Type: 
  Country: None (occurrence: None)
  Receive Date: 20070330
  Receipt Date: 20070319
  Transmission Date: 20070707
  Serious: Yes (Other)
  Sender: FDA-Public Use
  Company Number: PHBS2007BR05230

PATIENT
  Age: 65 Year
  Sex: Female

DRUGS (1)
  1. ZOLEDRONATE [Suspect]

REACTIONS (8)
  - ACTINOMYCOSIS [None]
  - BONE DISORDER [None]
  - IMPAIRED HEALING [None]
  - MANDIBULECTOMY [None]
  - OSTEONECROSIS [None]
  - PRIMARY SEQUESTRUM [None]
  - SURGERY [None]
  - TOOTH EXTRACTION [None]
